FAERS Safety Report 7604373-8 (Version None)
Quarter: 2011Q3

REPORT INFORMATION
  Report Type: 
  Country: None (occurrence: None)
  Receive Date: 20110712
  Receipt Date: 20110628
  Transmission Date: 20111222
  Serious: Yes (Other)
  Sender: FDA-Public Use
  Company Number: GB-AMGEN-GBRSP2011033116

PATIENT
  Age: 70 Year
  Sex: Female
  Weight: 52 kg

DRUGS (1)
  1. PROLIA [Suspect]
     Indication: OSTEOPOROSIS POSTMENOPAUSAL
     Dosage: 60 MG, Q6MO
     Route: 058
     Dates: start: 20110203, end: 20110203

REACTIONS (6)
  - INTERVERTEBRAL DISC DEGENERATION [None]
  - RAYNAUD'S PHENOMENON [None]
  - TELANGIECTASIA [None]
  - VITAMIN D DEFICIENCY [None]
  - CALCIUM DEFICIENCY [None]
  - TEMPERATURE INTOLERANCE [None]
